FAERS Safety Report 24980648 (Version 2)
Quarter: 2025Q1

REPORT INFORMATION
  Report Type: Spontaneous
  Country: US (occurrence: US)
  Receive Date: 20250218
  Receipt Date: 20250306
  Transmission Date: 20250409
  Serious: Yes (Other)
  Sender: BAYER HEALTHCARE PHARMACEUTICALS INC.
  Company Number: US-BAYER-2025A020470

PATIENT
  Age: 32 Year
  Sex: Female
  Weight: 64.1 kg

DRUGS (1)
  1. MIRENA [Suspect]
     Active Substance: LEVONORGESTREL
     Indication: Heavy menstrual bleeding
     Dosage: 20?G/DAY
     Route: 015
     Dates: start: 20240805, end: 20241115

REACTIONS (2)
  - Embedded device [Recovering/Resolving]
  - Device issue [None]

NARRATIVE: CASE EVENT DATE: 20240904
